FAERS Safety Report 21658393 (Version 4)
Quarter: 2022Q4

REPORT INFORMATION
  Report Type: Spontaneous
  Country: US (occurrence: US)
  Receive Date: 20221129
  Receipt Date: 20221207
  Transmission Date: 20230113
  Serious: No
  Sender: FDA-Public Use
  Company Number: US-PFIZER INC-202201337296

PATIENT
  Age: 83 Year
  Sex: Male
  Weight: 91.156 kg

DRUGS (2)
  1. XALKORI [Suspect]
     Active Substance: CRIZOTINIB
     Indication: Bronchial carcinoma
     Dosage: 250 MG, 2X/DAY
     Route: 048
     Dates: end: 20221126
  2. XALKORI [Suspect]
     Active Substance: CRIZOTINIB
     Indication: Adenocarcinoma

REACTIONS (1)
  - Neoplasm progression [Unknown]
